FAERS Safety Report 8357596 (Version 14)
Quarter: 2013Q4

REPORT INFORMATION
  Report Type: Report from Study
  Country: DE (occurrence: DE)
  Receive Date: 20120127
  Receipt Date: 20131024
  Transmission Date: 20140711
  Serious: Yes (Death, Hospitalization)
  Sender: FDA-Public Use
  Company Number: DE-SANOFI-AVENTIS-2012SA005133

PATIENT
  Age: 65 Year
  Sex: Female
  Weight: 91.4 kg

DRUGS (11)
  1. DOCETAXEL [Suspect]
     Indication: HER-2 POSITIVE BREAST CANCER
     Dosage: DOSE: 75 MG/M2, FORM:VIALS
     Route: 042
     Dates: start: 20100504
  2. DOCETAXEL [Suspect]
     Indication: HER-2 POSITIVE BREAST CANCER
     Dosage: DOSE REDUCED 60 MG/M2, FORM:VIALS
     Route: 042
     Dates: start: 20100615, end: 20100722
  3. TRASTUZUMAB [Suspect]
     Indication: HER-2 POSITIVE BREAST CANCER
     Dosage: DOSE LEVEL: 6MG/KG?FORM: VIALS
     Route: 042
     Dates: start: 20100504, end: 20100722
  4. CARBOPLATIN [Suspect]
     Indication: HER-2 POSITIVE BREAST CANCER
     Dosage: FORM: VIALS?DOSE LEVEL: 6 AUC
     Route: 042
     Dates: start: 20100504
  5. CARBOPLATIN [Suspect]
     Indication: HER-2 POSITIVE BREAST CANCER
     Dosage: 5 AUC, DOSE REDUCED
     Route: 042
     Dates: start: 20100615, end: 20100722
  6. ONDANSETRON [Concomitant]
     Route: 065
     Dates: start: 20100504, end: 20100722
  7. EMEND [Concomitant]
     Route: 065
     Dates: start: 20100504, end: 20100722
  8. DEXAMETHASONE [Concomitant]
     Route: 065
     Dates: start: 20100525, end: 20100722
  9. LOPERAMIDE [Concomitant]
     Dosage: DOSE: TDD MG
     Route: 065
     Dates: start: 20100715, end: 20100722
  10. BISOPROLOL [Concomitant]
     Route: 065
     Dates: start: 20100626, end: 20100722
  11. METOCLOPRAMIDE [Concomitant]
     Route: 065
     Dates: start: 20100504, end: 20100722

REACTIONS (2)
  - Neutropenia [Fatal]
  - Septic shock [Fatal]
